FAERS Safety Report 6691891-2 (Version None)
Quarter: 2010Q2

REPORT INFORMATION
  Report Type: 
  Country: None (occurrence: None)
  Receive Date: 20100422
  Receipt Date: 20090326
  Transmission Date: 20101027
  Serious: No
  Sender: FDA-Public Use
  Company Number: US-ASTRAZENECA-2009UW05244

PATIENT
  Age: 70 Year
  Sex: Male
  Weight: 68 kg

DRUGS (3)
  1. TOPROL-XL [Suspect]
     Indication: ARRHYTHMIA
     Route: 048
  2. BENICAR [Concomitant]
  3. LIPITOR [Concomitant]

REACTIONS (3)
  - ALOPECIA [None]
  - ARRHYTHMIA [None]
  - BLOOD PRESSURE INCREASED [None]
